FAERS Safety Report 5164551-7 (Version None)
Quarter: 2006Q4

REPORT INFORMATION
  Report Type: 
  Country: None (occurrence: None)
  Receive Date: 20061205
  Receipt Date: 20061128
  Transmission Date: 20070319
  Serious: Yes (Hospitalization)
  Sender: FDA-Public Use
  Company Number: US-BRISTOL-MYERS SQUIBB COMPANY-13590807

PATIENT
  Age: 50 Year
  Sex: Male
  Weight: 97 kg

DRUGS (3)
  1. CETUXIMAB [Suspect]
     Indication: SQUAMOUS CELL CARCINOMA
  2. CISPLATIN [Suspect]
     Indication: SQUAMOUS CELL CARCINOMA
  3. RADIATION THERAPY [Suspect]
     Indication: SQUAMOUS CELL CARCINOMA
     Dosage: 58 GY.  29 FRACTIONS. 35 ELASPED DAYS.
     Dates: end: 20061122

REACTIONS (1)
  - STOMATITIS [None]
